FAERS Safety Report 25509854 (Version 1)
Quarter: 2025Q3

REPORT INFORMATION
  Report Type: Spontaneous
  Country: US (occurrence: None)
  Receive Date: 20250702
  Receipt Date: 20250702
  Transmission Date: 20251021
  Serious: Yes (Other)
  Sender: FDA-CTU
  Company Number: None

PATIENT
  Age: 36 Year
  Sex: Female

DRUGS (1)
  1. REPATHA [Suspect]
     Active Substance: EVOLOCUMAB
     Dates: start: 20250122, end: 20250702

REACTIONS (8)
  - Feeling abnormal [None]
  - Sinusitis [None]
  - Sinus congestion [None]
  - Ear pain [None]
  - Myalgia [None]
  - Myalgia [None]
  - Anti-thyroid antibody increased [None]
  - Therapy cessation [None]

NARRATIVE: CASE EVENT DATE: 20250625
